FAERS Safety Report 6581748-X (Version None)
Quarter: 2010Q1

REPORT INFORMATION
  Report Type: 
  Country: None (occurrence: None)
  Receive Date: 20100215
  Receipt Date: 20100203
  Transmission Date: 20100710
  Serious: Yes (Other)
  Sender: FDA-Public Use
  Company Number: PHHY2010PA03934

PATIENT
  Sex: Female

DRUGS (2)
  1. ZOMETA [Suspect]
     Dosage: 34 CYCLES
     Dates: start: 20050801
  2. AROMASIN [Concomitant]
     Dosage: 1 TABLET DAILY

REACTIONS (3)
  - HYPOPHAGIA [None]
  - OSTEONECROSIS [None]
  - SENSORY LOSS [None]
